FAERS Safety Report 9688191 (Version 3)
Quarter: 2014Q1

REPORT INFORMATION
  Report Type: Spontaneous
  Country: DE (occurrence: DE)
  Receive Date: 20131114
  Receipt Date: 20140131
  Transmission Date: 20141002
  Serious: Yes (Hospitalization)
  Sender: FDA-Public Use
  Company Number: DE-BRISTOL-MYERS SQUIBB COMPANY-19792191

PATIENT
  Sex: Male

DRUGS (1)
  1. ELIQUIS [Suspect]
     Dosage: ELIQUIS NEEDS TO BE ADMINISTERED VIA TUBE

REACTIONS (2)
  - Dysphagia [Unknown]
  - General physical health deterioration [Unknown]
